FAERS Safety Report 4476790-9 (Version None)
Quarter: 2004Q4

REPORT INFORMATION
  Report Type: 
  Country: None (occurrence: None)
  Receive Date: 20041013
  Receipt Date: 20040930
  Transmission Date: 20050328
  Serious: Yes (Other)
  Sender: FDA-Public Use
  Company Number: 200407162

PATIENT
  Age: 39 Year
  Sex: Female

DRUGS (3)
  1. TAZORAC [Suspect]
     Indication: ACNE
     Dates: start: 20040106, end: 20040214
  2. FLONASE [Concomitant]
  3. LORATADINE [Concomitant]

REACTIONS (4)
  - ABORTION SPONTANEOUS [None]
  - BLIGHTED OVUM [None]
  - DRUG EXPOSURE DURING PREGNANCY [None]
  - PREGNANCY [None]
